FAERS Safety Report 8362608-0 (Version None)
Quarter: 2012Q2

REPORT INFORMATION
  Report Type: 
  Country: None (occurrence: None)
  Receive Date: 20120516
  Receipt Date: 20120508
  Transmission Date: 20120825
  Serious: No
  Sender: FDA-Public Use
  Company Number: US-PFIZER INC-2012022915

PATIENT
  Sex: Female

DRUGS (2)
  1. LATANOPROST [Suspect]
     Indication: OPEN ANGLE GLAUCOMA
     Dosage: ONCE QH AND QHS
     Dates: start: 20060105, end: 20060131
  2. TRAVATAN [Suspect]
     Dosage: UNK

REACTIONS (2)
  - HEADACHE [None]
  - DIARRHOEA [None]
